FAERS Safety Report 11840976 (Version 1)
Quarter: 2015Q4

REPORT INFORMATION
  Report Type: Spontaneous
  Country: IL (occurrence: IL)
  Receive Date: 20151216
  Receipt Date: 20151216
  Transmission Date: 20160305
  Serious: Yes (Hospitalization, Other)
  Sender: FDA-Public Use
  Company Number: IL-TEVA-617445ISR

PATIENT
  Age: 84 Year
  Sex: Female

DRUGS (9)
  1. CARDILOC 2.5MG [Concomitant]
     Dosage: 1.25 MILLIGRAM DAILY;
     Route: 048
  2. ELTROXIN 50MCG [Concomitant]
     Route: 048
  3. LITROVA 40MG [Concomitant]
     Route: 048
  4. VALSARTAN 80MG [Concomitant]
     Active Substance: VALSARTAN
     Route: 048
  5. LANTON 30MG [Concomitant]
     Route: 048
  6. ZODORM [Concomitant]
  7. PLAVIX [Concomitant]
     Active Substance: CLOPIDOGREL BISULFATE
     Route: 048
  8. LEVETIRACETAM 500MG [Suspect]
     Active Substance: LEVETIRACETAM
     Indication: PARTIAL SEIZURES
     Dosage: 500 MILLIGRAM DAILY;
     Route: 048
     Dates: start: 2015
  9. AERIUS 5MG [Concomitant]

REACTIONS (5)
  - Aphasia [Recovered/Resolved]
  - Confusional state [Recovered/Resolved]
  - Transient ischaemic attack [Recovered/Resolved]
  - Memory impairment [Recovered/Resolved]
  - Hepatic enzyme increased [Recovered/Resolved]

NARRATIVE: CASE EVENT DATE: 20151028
